FAERS Safety Report 7088157-8 (Version None)
Quarter: 2010Q4

REPORT INFORMATION
  Report Type: 
  Country: None (occurrence: None)
  Receive Date: 20101028
  Receipt Date: 20101015
  Transmission Date: 20110411
  Serious: Yes (Death)
  Sender: FDA-Public Use
  Company Number: 2010100026

PATIENT
  Age: 58 Year
  Sex: Male

DRUGS (17)
  1. ONSOLIS [Suspect]
     Indication: CANCER PAIN
     Dosage: SEE IMAGE
     Route: 002
     Dates: start: 20100610
  2. ONSOLIS [Suspect]
     Indication: CANCER PAIN
     Dosage: SEE IMAGE
     Route: 002
     Dates: start: 20100719
  3. ONSOLIS [Suspect]
     Indication: CANCER PAIN
     Dosage: SEE IMAGE
     Route: 002
     Dates: start: 20100818
  4. ONSOLIS [Suspect]
  5. ONSOLIS [Suspect]
  6. ACETYLSALICYLIC ACID [Suspect]
     Indication: THROMBOSIS PROPHYLAXIS
     Dosage: 81 MG (81 MG, 1 IN 1 D), ORAL
     Route: 048
  7. COUMADIN [Suspect]
     Indication: THROMBOSIS PROPHYLAXIS
     Dosage: 6 MG (6 MG, 1 IN 1 D), ORAL
     Route: 048
  8. COMPAZINE [Concomitant]
  9. FENTORA (FENTANYL CITRATE) [Concomitant]
  10. PAXIL [Concomitant]
  11. VICODIN [Concomitant]
  12. LOVASTATIN [Concomitant]
  13. METFORMIN HCL [Concomitant]
  14. PEPCID AC [Concomitant]
  15. MS CONTIN (MORPHINE SULFATE CONTROLLED RELEASE) [Concomitant]
  16. STOOL SOFTENERS [Concomitant]
  17. BUPIVACAINE/DROPEREDOL/HYDROMORPHONE [Concomitant]

REACTIONS (3)
  - CEREBRAL HAEMORRHAGE [None]
  - PLATELET COUNT DECREASED [None]
  - SUBDURAL HAEMATOMA [None]
